FAERS Safety Report 24736880 (Version 1)
Quarter: 2024Q4

REPORT INFORMATION
  Report Type: Spontaneous
  Country: US (occurrence: US)
  Receive Date: 20241216
  Receipt Date: 20241216
  Transmission Date: 20250114
  Serious: Yes (Other)
  Sender: HIKMA
  Company Number: US-HIKMA PHARMACEUTICALS-US-H14001-24-11469

PATIENT
  Age: 31 Year
  Sex: Male

DRUGS (10)
  1. DEXAMETHASONE [Suspect]
     Active Substance: DEXAMETHASONE
     Indication: Meningitis tuberculous
     Dosage: UNKNOWN
     Route: 065
  2. ETHAMBUTOL [Suspect]
     Active Substance: ETHAMBUTOL HYDROCHLORIDE
     Indication: Meningitis tuberculous
     Dosage: UNKNOWN
     Route: 065
  3. ISONIAZID [Suspect]
     Active Substance: ISONIAZID
     Indication: Meningitis tuberculous
     Dosage: UNKNOWN
     Route: 065
  4. LEVOFLOXACIN [Suspect]
     Active Substance: LEVOFLOXACIN
     Indication: Meningitis tuberculous
     Dosage: UNKNOWN
     Route: 065
  5. LINEZOLID [Suspect]
     Active Substance: LINEZOLID
     Indication: Meningitis tuberculous
     Dosage: UNKNOWN
     Route: 065
  6. PREDNISONE [Suspect]
     Active Substance: PREDNISONE
     Indication: Meningitis tuberculous
     Dosage: UNKNOWN
     Route: 065
  7. PYRAZINAMIDE [Suspect]
     Active Substance: PYRAZINAMIDE
     Indication: Meningitis tuberculous
     Dosage: UNKNOWN
     Route: 065
  8. RIFAMPIN [Suspect]
     Active Substance: RIFAMPIN
     Indication: Meningitis tuberculous
     Dosage: UNKNOWN
     Route: 065
  9. ASPIRIN [Concomitant]
     Active Substance: ASPIRIN
     Indication: Cerebrovascular accident prophylaxis
     Dosage: UNKNOWN
     Route: 065
  10. LEVETIRACETAM [Concomitant]
     Active Substance: LEVETIRACETAM
     Indication: Cerebrovascular accident prophylaxis
     Dosage: UNKNOWN
     Route: 065

REACTIONS (2)
  - Condition aggravated [Unknown]
  - Meningitis tuberculous [Unknown]
